FAERS Safety Report 8515299 (Version 4)
Quarter: 2013Q4

REPORT INFORMATION
  Report Type: Report from Study
  Country: US (occurrence: US)
  Receive Date: 20120406
  Receipt Date: 20131031
  Transmission Date: 20140711
  Serious: Yes (Hospitalization, Other)
  Sender: FDA-Public Use
  Company Number: US-MSD-2012SP017245

PATIENT
  Age: 60 Year
  Sex: Male

DRUGS (5)
  1. PEG-INTRON [Suspect]
     Indication: HEPATITIS C
     Dosage: UNK UNK, UNKNOWN
     Route: 065
     Dates: start: 20120427, end: 20120617
  2. REBETOL [Suspect]
     Indication: HEPATITIS C
     Dosage: UNK UNK, UNKNOWN
     Route: 065
     Dates: start: 20120427, end: 20120617
  3. INVESTIGATIONAL DRUG (UNSPECIFIED) [Suspect]
     Indication: HEPATITIS C
     Dosage: UNK UNK, UNKNOWN
     Route: 065
     Dates: start: 20120316
  4. ANTIVIRAL (UNSPECIFIED) [Suspect]
     Dosage: UNK UNK, UNKNOWN
     Route: 065
     Dates: start: 20120317
  5. TELAPREVIR [Concomitant]
     Indication: HEPATITIS C
     Dosage: UNK
     Dates: start: 20120427, end: 20120617

REACTIONS (5)
  - Clostridium difficile infection [Unknown]
  - Hepatic failure [Unknown]
  - Renal failure [Unknown]
  - Depressed level of consciousness [Unknown]
  - Chills [Unknown]
